FAERS Safety Report 4738455-5 (Version None)
Quarter: 2005Q3

REPORT INFORMATION
  Report Type: 
  Country: None (occurrence: None)
  Receive Date: 20050803
  Receipt Date: 20050721
  Transmission Date: 20060218
  Serious: Yes (Hospitalization)
  Sender: FDA-Public Use
  Company Number: 2005049738

PATIENT
  Age: 48 Year
  Sex: Male
  Weight: 48 kg

DRUGS (5)
  1. EPIRUBICIN HCL [Suspect]
     Indication: LUNG CARCINOMA CELL TYPE UNSPECIFIED STAGE 0
     Dosage: 60 MG (CYCLIC INTERVAL:  EVERY MONTH), INTRAVENOUS
     Route: 042
     Dates: start: 20050105, end: 20050207
  2. PREDNISONE [Suspect]
     Indication: ILL-DEFINED DISORDER
     Dosage: ORAL
     Route: 048
     Dates: start: 20041201
  3. CYCLOPHOSPHAMIDE [Suspect]
     Indication: LUNG CARCINOMA CELL TYPE UNSPECIFIED STAGE 0
     Dosage: 620 MG (CYCLIC INTERVAL:  EVERY MONTH) INTRAVENOUS
     Route: 042
     Dates: start: 20050105, end: 20050209
  4. ETOPOSIDE [Suspect]
     Indication: LUNG CARCINOMA CELL TYPE UNSPECIFIED STAGE 0
     Dosage: 150 MG (CYCLIC INTERVAL:  EVERY MONTH), INTRAVENOUS
     Route: 042
     Dates: start: 20050105, end: 20050209
  5. CISPLATIN [Suspect]
     Indication: LUNG CARCINOMA CELL TYPE UNSPECIFIED STAGE 0
     Dosage: 155 MG (CYCLIC INTERVAL:  EVERY MONTH), INTRAVENOUS
     Route: 042
     Dates: start: 20050106, end: 20050208

REACTIONS (7)
  - ASTHENIA [None]
  - CONDITION AGGRAVATED [None]
  - COUGH [None]
  - CRYPTOGENIC ORGANIZING PNEUMONIA [None]
  - MYALGIA [None]
  - PULMONARY HYPERTENSION [None]
  - PULMONARY VENO-OCCLUSIVE DISEASE [None]
